FAERS Safety Report 5197176-8 (Version None)
Quarter: 2006Q4

REPORT INFORMATION
  Report Type: 
  Country: None (occurrence: None)
  Receive Date: 20061227
  Receipt Date: 20061219
  Transmission Date: 20070319
  Serious: Yes (Death, Other)
  Sender: FDA-Public Use
  Company Number: 056-C5013-06100973

PATIENT
  Age: 57 Year
  Sex: Female
  Weight: 78 kg

DRUGS (10)
  1. REVLIMID [Suspect]
     Indication: MULTIPLE MYELOMA
     Dosage: 25 MG, 1 IN 1 D, ORAL
     Route: 048
     Dates: start: 20060906, end: 20061007
  2. DEXAMETHASONE TAB [Suspect]
     Indication: DRUG USE FOR UNKNOWN INDICATION
     Dosage: 40 MG, ORAL
     Route: 048
  3. AUGMENTIN '125' [Concomitant]
  4. KARDEGIC 160 (ACETYLSALICYLATE LYSINE) [Concomitant]
  5. PROZAC 20 (FLUOXETINE HYDROCHLORIDE) [Concomitant]
  6. LOVENOX [Concomitant]
  7. ZOFRAN [Concomitant]
  8. PEVARYL (ECONAZOLE NITRATE) (OINTMENT) [Concomitant]
  9. OFLOXACIN [Concomitant]
  10. .. [Concomitant]

REACTIONS (5)
  - CARDIAC FAILURE [None]
  - MALIGNANT NEOPLASM PROGRESSION [None]
  - MULTIPLE MYELOMA [None]
  - OVERDOSE [None]
  - RENAL FAILURE ACUTE [None]
